FAERS Safety Report 24735577 (Version 1)
Quarter: 2024Q4

REPORT INFORMATION
  Report Type: Report from Study
  Country: BR (occurrence: BR)
  Receive Date: 20241216
  Receipt Date: 20241216
  Transmission Date: 20250115
  Serious: Yes (Other)
  Sender: UCB
  Company Number: BR-UCBSA-2024064904

PATIENT
  Age: 28 Year
  Sex: Male

DRUGS (1)
  1. LEVETIRACETAM [Suspect]
     Active Substance: LEVETIRACETAM
     Indication: Epilepsy
     Dosage: 250MG 3 TABLETS IN THE MORNING, 3 TABLETS IN THE  AFTERNOON AND 2 TABLETS AT NIGHT
     Dates: start: 202112, end: 20241206

REACTIONS (5)
  - Arteriovenous malformation [Unknown]
  - Surgery [Unknown]
  - Off label use [Unknown]
  - Product availability issue [Unknown]
  - Therapy interrupted [Unknown]

NARRATIVE: CASE EVENT DATE: 20211201
